FAERS Safety Report 5431718-X (Version None)
Quarter: 2007Q3

REPORT INFORMATION
  Report Type: 
  Country: None (occurrence: None)
  Receive Date: 20070830
  Receipt Date: 20070828
  Transmission Date: 20080115
  Serious: Yes (Other)
  Sender: FDA-Public Use
  Company Number: AT-BRISTOL-MYERS SQUIBB COMPANY-13885827

PATIENT
  Age: 27 Year
  Weight: 50 kg

DRUGS (9)
  1. ABATACEPT [Suspect]
     Indication: JUVENILE ARTHRITIS
     Dosage: 500MG IV ON 22JUN07;500MG IV ON 05JUL07;500MG IV ON 24JUL07
     Route: 042
     Dates: start: 20070622, end: 20070821
  2. PANTOPRAZOLE SODIUM [Concomitant]
     Route: 048
     Dates: start: 20070401
  3. ALENDRONATE SODIUM [Concomitant]
     Route: 048
     Dates: start: 20070401
  4. METAMIZOL [Concomitant]
     Route: 048
  5. NAPROXEN [Concomitant]
     Route: 048
  6. DULOXETINE HCL [Concomitant]
     Route: 048
  7. PREDNISOLONE [Concomitant]
     Route: 048
  8. FOLIC ACID [Concomitant]
     Route: 048
  9. CYCLOSPORINE [Concomitant]
     Route: 048

REACTIONS (5)
  - ANXIETY [None]
  - CHEST DISCOMFORT [None]
  - CHILLS [None]
  - HEADACHE [None]
  - VISUAL DISTURBANCE [None]
